FAERS Safety Report 7973848-4 (Version None)
Quarter: 2011Q4

REPORT INFORMATION
  Report Type: 
  Country: None (occurrence: None)
  Receive Date: 20111213
  Receipt Date: 20111207
  Transmission Date: 20120403
  Serious: Yes (Other)
  Sender: FDA-Public Use
  Company Number: PHHY2011FR107893

PATIENT
  Age: 60 Year
  Sex: Male

DRUGS (4)
  1. CYCLOSPORINE [Suspect]
     Indication: PROPHYLAXIS AGAINST GRAFT VERSUS HOST DISEASE
  2. FLUDARABINE PHOSPHATE [Concomitant]
     Indication: STEM CELL TRANSPLANT
     Dosage: 30 MG/M2, QD FOR 5 DAYS
     Route: 042
  3. CYCLOSPORINE [Suspect]
     Indication: STEM CELL TRANSPLANT
  4. MYCOPHENOLATE MOFETIL [Concomitant]
     Indication: STEM CELL TRANSPLANT

REACTIONS (4)
  - ACUTE GRAFT VERSUS HOST DISEASE [None]
  - PLATELET COUNT DECREASED [None]
  - CHRONIC GRAFT VERSUS HOST DISEASE [None]
  - BLOOD STEM CELL TRANSPLANT FAILURE [None]
